FAERS Safety Report 19001788 (Version 1)
Quarter: 2021Q1

REPORT INFORMATION
  Report Type: Other
  Country: IT (occurrence: IT)
  Receive Date: 20210312
  Receipt Date: 20210312
  Transmission Date: 20210420
  Serious: Yes (Disabling)
  Sender: FDA-Public Use
  Company Number: IT-MACLEODS PHARMACEUTICALS US LTD-MAC2021030426

PATIENT

DRUGS (2)
  1. DELTACORTENE [Concomitant]
     Active Substance: PREDNISONE
     Indication: SINUSITIS
     Dosage: 50 MILLIGRAM, QD
     Route: 048
     Dates: start: 20210223
  2. LEVOFLOXACIN 500 MG [Suspect]
     Active Substance: LEVOFLOXACIN
     Indication: SINUSITIS
     Dosage: 500 MILLIGRAM, QD
     Route: 048
     Dates: start: 20210223, end: 20210225

REACTIONS (3)
  - Gait disturbance [Not Recovered/Not Resolved]
  - Pain [Not Recovered/Not Resolved]
  - Peripheral swelling [Not Recovered/Not Resolved]

NARRATIVE: CASE EVENT DATE: 20210223
